FAERS Safety Report 24574508 (Version 1)
Quarter: 2024Q4

REPORT INFORMATION
  Report Type: Spontaneous
  Country: US (occurrence: US)
  Receive Date: 20241104
  Receipt Date: 20241104
  Transmission Date: 20250115
  Serious: No
  Sender: DR REDDYS
  Company Number: US-DRL-USA-SPO/USA/24/0015934

PATIENT
  Age: 58 Year
  Sex: Male
  Weight: 81.6 kg

DRUGS (1)
  1. SUMATRIPTAN SUCCINATE [Suspect]
     Active Substance: SUMATRIPTAN SUCCINATE
     Indication: Typical aura without headache
     Dosage: INJECTION USP, AUTO-INJECTION SYSTEM 6 MG/0.5 ML SINGLE PEN (0.5ML IN 1 SYRINGE)
     Route: 065

REACTIONS (2)
  - Product dose omission issue [Unknown]
  - Device defective [Unknown]
